FAERS Safety Report 9479429 (Version 1)
Quarter: 2013Q3

REPORT INFORMATION
  Report Type: Spontaneous
  Country: US (occurrence: US)
  Receive Date: 20130827
  Receipt Date: 20130827
  Transmission Date: 20140515
  Serious: No
  Sender: FDA-Public Use
  Company Number: US-009507513-1308USA011553

PATIENT
  Age: 28 Year
  Sex: Female

DRUGS (3)
  1. SAPHRIS [Suspect]
     Indication: BIPOLAR DISORDER
     Dosage: 15 MG, QD
     Route: 060
     Dates: start: 201305
  2. LITHIUM [Concomitant]
  3. LAMICTAL [Concomitant]

REACTIONS (4)
  - Libido disorder [Unknown]
  - Libido decreased [Unknown]
  - Undersensing [Unknown]
  - Hypoaesthesia [Unknown]
